FAERS Safety Report 16389165 (Version 1)
Quarter: 2019Q2

REPORT INFORMATION
  Report Type: Spontaneous
  Country: CH (occurrence: CH)
  Receive Date: 20190604
  Receipt Date: 20190604
  Transmission Date: 20190711
  Serious: Yes (Hospitalization, Other)
  Sender: FDA-Public Use
  Company Number: CH-PFIZER INC-2019230769

PATIENT
  Age: 59 Year
  Sex: Male
  Weight: 73.4 kg

DRUGS (15)
  1. TOREM [TORASEMIDE] [Concomitant]
     Active Substance: TORSEMIDE
     Dosage: 10 MG, 1X/DAY
     Route: 048
     Dates: end: 20190417
  2. TRITTICO [Concomitant]
     Active Substance: TRAZODONE HYDROCHLORIDE
     Dosage: 15 MG, 1X/DAY
     Route: 048
  3. VORICONAZOL PFIZER [Suspect]
     Active Substance: VORICONAZOLE
     Indication: BRONCHOPULMONARY ASPERGILLOSIS
     Dosage: 6 MG/KG, 2X/DAY (THE FIRST 2 DOSES)
     Route: 042
     Dates: start: 20190412, end: 20190412
  4. FLAGYL [Interacting]
     Active Substance: METRONIDAZOLE\METRONIDAZOLE HYDROCHLORIDE
     Indication: FEBRILE NEUTROPENIA
     Dosage: 500 MG, 3X/DAY
     Route: 048
     Dates: start: 20190410, end: 20190420
  5. FLAGYL [Interacting]
     Active Substance: METRONIDAZOLE\METRONIDAZOLE HYDROCHLORIDE
     Indication: NEUTROPENIC COLITIS
  6. DOXYCLIN [DOXYCYCLINE HYCLATE] [Concomitant]
     Dosage: 200 MG, 1X/DAY
     Route: 048
  7. FORTECORTIN [DEXAMETHASONE] [Concomitant]
     Active Substance: DEXAMETHASONE
     Dosage: 4 MG, 1X/DAY
     Route: 048
     Dates: end: 20190418
  8. VORICONAZOL PFIZER [Interacting]
     Active Substance: VORICONAZOLE
     Dosage: 4 MG/KG, 2X/DAY (FROM THE THIRD DOSE)
     Route: 042
     Dates: start: 20190413, end: 20190415
  9. VALTREX [Concomitant]
     Active Substance: VALACYCLOVIR HYDROCHLORIDE
     Dosage: 500 MG, 2X/DAY
     Route: 048
  10. CEFEPIME [Concomitant]
     Active Substance: CEFEPIME HYDROCHLORIDE
     Dosage: 2 G, UNK
     Route: 042
     Dates: start: 20190410
  11. ACIDUM FOLICUM STREULI [Concomitant]
     Active Substance: FOLIC ACID
     Dosage: 5 MG, 1X/DAY
     Route: 048
  12. NEXIUM [Concomitant]
     Active Substance: ESOMEPRAZOLE MAGNESIUM
     Dosage: 40 MG, 1X/DAY
     Route: 048
  13. BACTRIM [Concomitant]
     Active Substance: SULFAMETHOXAZOLE\TRIMETHOPRIM
     Dosage: 800/160MG TABLETS, 1X/DAY, 3X/WEEK
     Route: 048
  14. DIFLUCAN [Interacting]
     Active Substance: FLUCONAZOLE
     Indication: INFECTION PROPHYLAXIS
     Dosage: 200 MG, WEEKLY
     Route: 048
     Dates: start: 20190406, end: 20190516
  15. VOTUM [OLMESARTAN MEDOXOMIL] [Concomitant]
     Dosage: 40 MG, 1X/DAY
     Route: 048

REACTIONS (4)
  - Drug interaction [Unknown]
  - Hallucination, visual [Unknown]
  - Vision blurred [Unknown]
  - Drug level increased [Unknown]

NARRATIVE: CASE EVENT DATE: 20190412
